FAERS Safety Report 15317524 (Version 1)
Quarter: 2018Q3

REPORT INFORMATION
  Report Type: Spontaneous
  Country: US (occurrence: US)
  Receive Date: 20180824
  Receipt Date: 20180824
  Transmission Date: 20181010
  Serious: No
  Sender: FDA-Public Use
  Company Number: US-TAKEDA-2018TUS025261

PATIENT
  Sex: Female

DRUGS (3)
  1. DEXILANT [Suspect]
     Active Substance: DEXLANSOPRAZOLE
     Indication: CARDIAC FLUTTER
     Dosage: 60 MG, UNK
     Route: 048
     Dates: start: 20180817
  2. DEXILANT [Suspect]
     Active Substance: DEXLANSOPRAZOLE
     Indication: CHEST DISCOMFORT
  3. DEXILANT [Suspect]
     Active Substance: DEXLANSOPRAZOLE
     Indication: WEIGHT DECREASED

REACTIONS (2)
  - Off label use [Unknown]
  - Burning sensation [Unknown]
